FAERS Safety Report 10222412 (Version 1)
Quarter: 2014Q1

REPORT INFORMATION
  Report Type: Spontaneous
  Country: US (occurrence: None)
  Receive Date: 20140306
  Receipt Date: 20140306
  Transmission Date: 20141002
  Serious: Yes (Other)
  Sender: FDA-Public Use
  Company Number: 163-21880-13034229

PATIENT
  Age: 87 Year
  Sex: Male

DRUGS (1)
  1. REVLIMID [Suspect]
     Indication: PLASMA CELL MYELOMA
     Route: 048
     Dates: start: 20121228, end: 20130320

REACTIONS (6)
  - Anaemia [None]
  - Neutropenia [None]
  - Constipation [None]
  - Fatigue [None]
  - Dry skin [None]
  - Dyspnoea [None]
